FAERS Safety Report 10566720 (Version 5)
Quarter: 2015Q1

REPORT INFORMATION
  Report Type: Spontaneous
  Country: PL (occurrence: PL)
  Receive Date: 20141105
  Receipt Date: 20150126
  Transmission Date: 20150720
  Serious: Yes (Hospitalization, Other)
  Sender: FDA-Public Use
  Company Number: PL-SYMPLMED PHARMACEUTICALS-2014SYM00088

PATIENT
  Age: 78 Year
  Sex: Female
  Weight: 68 kg

DRUGS (10)
  1. ATENOLOL. [Concomitant]
     Active Substance: ATENOLOL
     Indication: HYPERTENSION
     Dosage: 25 MG, QD IN THE EVENING
     Dates: start: 201301, end: 201306
  2. ACEON [Suspect]
     Active Substance: PERINDOPRIL ERBUMINE
     Dosage: 0.5 DF, QD
     Route: 048
     Dates: start: 20140902, end: 201409
  3. ACEON [Suspect]
     Active Substance: PERINDOPRIL ERBUMINE
     Indication: HYPERTENSION
     Dosage: 5 MG, BID
     Route: 048
     Dates: start: 20130306, end: 201304
  4. ACEON [Suspect]
     Active Substance: PERINDOPRIL ERBUMINE
     Dosage: 5 MG, QD
     Route: 048
     Dates: start: 201306, end: 201311
  5. HERBAL EXTRACT NOS [Concomitant]
     Active Substance: HERBALS
     Indication: PRODUCT USED FOR UNKNOWN INDICATION
  6. AMLODIPINE BESILATE [Concomitant]
     Active Substance: AMLODIPINE BESYLATE
     Indication: PRODUCT USED FOR UNKNOWN INDICATION
     Dosage: UNK
     Dates: start: 20130306, end: 201311
  7. ACEON [Suspect]
     Active Substance: PERINDOPRIL ERBUMINE
     Dosage: 5 MG, QD
     Route: 048
     Dates: start: 201409, end: 20141029
  8. ACEON [Suspect]
     Active Substance: PERINDOPRIL ERBUMINE
     Dosage: 10 MG, QD
     Route: 048
     Dates: start: 20140822, end: 20140901
  9. HYDROXYZINE HYDROCHLORIDE. [Concomitant]
     Active Substance: HYDROXYZINE HYDROCHLORIDE
     Indication: INITIAL INSOMNIA
     Dosage: 25 MG, QD IN THE EVENING
     Dates: start: 2012, end: 20140901
  10. ESTAZOLAM. [Concomitant]
     Active Substance: ESTAZOLAM
     Indication: INITIAL INSOMNIA
     Dosage: 0.5 TABLET DAILY IN THE EVENING

REACTIONS (15)
  - Abdominal pain [Recovered/Resolved]
  - Head injury [Not Recovered/Not Resolved]
  - Drug ineffective [Not Recovered/Not Resolved]
  - Muscle spasms [Not Recovered/Not Resolved]
  - Dyspnoea [Recovered/Resolved]
  - Cerebrovascular disorder [Not Recovered/Not Resolved]
  - Angina unstable [Not Recovered/Not Resolved]
  - Fall [Recovered/Resolved]
  - Rash pruritic [Recovered/Resolved]
  - Dizziness [Recovered/Resolved]
  - Dry mouth [Not Recovered/Not Resolved]
  - Tinnitus [Recovered/Resolved]
  - Constipation [Recovered/Resolved]
  - Intentional product misuse [Unknown]
  - Headache [Recovered/Resolved]

NARRATIVE: CASE EVENT DATE: 20130306
